FAERS Safety Report 9477969 (Version 2)
Quarter: 2013Q3

REPORT INFORMATION
  Report Type: Spontaneous
  Country: US (occurrence: US)
  Receive Date: 20130827
  Receipt Date: 20130909
  Transmission Date: 20140515
  Serious: Yes (Death)
  Sender: FDA-Public Use
  Company Number: US-009507513-1308USA011206

PATIENT
  Sex: Male

DRUGS (13)
  1. FOSAMAX [Suspect]
  2. DOXAZOSIN MESYLATE [Suspect]
  3. PROSCAR [Suspect]
  4. FOLIC ACID [Suspect]
  5. GLIPIZIDE [Suspect]
  6. HYDROCHLOROTHIAZIDE [Suspect]
  7. GLUCOSAMINE [Suspect]
  8. LOSARTAN POTASSIUM [Suspect]
  9. OMEGA-3 [Suspect]
  10. VITAMIN A [Suspect]
  11. WARFARIN [Suspect]
  12. SUTENT [Suspect]
  13. LIPITOR [Suspect]

REACTIONS (2)
  - Death [Fatal]
  - Rash [Unknown]
